FAERS Safety Report 22317715 (Version 1)
Quarter: 2023Q2

REPORT INFORMATION
  Report Type: Spontaneous
  Country: US (occurrence: US)
  Receive Date: 20230515
  Receipt Date: 20230515
  Transmission Date: 20230721
  Serious: Yes (Other)
  Sender: FDA-Public Use
  Company Number: US-LUPIN PHARMACEUTICALS INC.-2022SUN003152

PATIENT

DRUGS (2)
  1. XOPENEX HFA [Suspect]
     Active Substance: LEVALBUTEROL TARTRATE
     Indication: Product used for unknown indication
     Dosage: 45 MICROGRAM
     Route: 055
  2. XOPENEX HFA [Suspect]
     Active Substance: LEVALBUTEROL TARTRATE
     Dosage: UNK, EVERY DAY

REACTIONS (8)
  - Bradycardia [Unknown]
  - Single functional kidney [Unknown]
  - Hypersensitivity [Unknown]
  - Dyspnoea [Unknown]
  - Expired product administered [Unknown]
  - Device delivery system issue [Not Recovered/Not Resolved]
  - Device issue [Not Recovered/Not Resolved]
  - Inappropriate schedule of product administration [Unknown]
